FAERS Safety Report 16737205 (Version 1)
Quarter: 2019Q3

REPORT INFORMATION
  Report Type: Spontaneous
  Country: AU (occurrence: AU)
  Receive Date: 20190823
  Receipt Date: 20190823
  Transmission Date: 20191005
  Serious: Yes (Other)
  Sender: FDA-Public Use
  Company Number: AU-SHIRE-AU201923097

PATIENT

DRUGS (9)
  1. METHYLPREDNISOLONE. [Suspect]
     Active Substance: METHYLPREDNISOLONE
     Indication: MORPHOEA
     Dosage: 30 MILLIGRAM/KILOGRAM, 1X A MONTH
     Route: 065
  2. PREDNISOLONE. [Suspect]
     Active Substance: PREDNISOLONE
     Indication: MORPHOEA
     Dosage: 1 MILLIGRAM/KILOGRAM, 1X/DAY:QD
     Route: 065
  3. RITUXIMAB. [Suspect]
     Active Substance: RITUXIMAB
     Indication: MORPHOEA
     Route: 065
  4. HYDROXYCHLOROQUINE SULFATE. [Suspect]
     Active Substance: HYDROXYCHLOROQUINE SULFATE
     Indication: MORPHOEA
     Dosage: 200 MILLIGRAM, 3X A WEEK
     Route: 065
  5. MYCOPHENOLATE MOFETIL. [Suspect]
     Active Substance: MYCOPHENOLATE MOFETIL
     Indication: MORPHOEA
     Dosage: 300 MILLIGRAM, 2X/DAY:BID
     Route: 065
  6. NAPROXEN. [Suspect]
     Active Substance: NAPROXEN
     Indication: MORPHOEA
     Route: 065
  7. HUMAN NORMAL IMMUNOGLOBULIN [Suspect]
     Active Substance: HUMAN IMMUNOGLOBULIN G
     Indication: MORPHOEA
     Dosage: 1 GRAM PER KILOGRAM, 1X A MONTH
     Route: 042
  8. METHOTREXATE. [Suspect]
     Active Substance: METHOTREXATE
     Indication: MORPHOEA
     Dosage: 15 MILLIGRAM/SQ. METER, 1X/WEEK
     Route: 065
  9. TOCILIZUMAB. [Suspect]
     Active Substance: TOCILIZUMAB
     Indication: MORPHOEA
     Route: 065

REACTIONS (3)
  - Morphoea [Unknown]
  - Product use in unapproved indication [Unknown]
  - Disease progression [Unknown]
